FAERS Safety Report 8118114-1 (Version None)
Quarter: 2012Q1

REPORT INFORMATION
  Report Type: 
  Country: None (occurrence: None)
  Receive Date: 20120207
  Receipt Date: 20120203
  Transmission Date: 20120608
  Serious: Yes (Death, Other)
  Sender: FDA-Public Use
  Company Number: JP-BAYER-2011-114060

PATIENT
  Age: 63 Year
  Sex: Male
  Weight: 70 kg

DRUGS (11)
  1. DIART [Concomitant]
     Dosage: DAILY DOSE 60 MG
     Route: 048
     Dates: start: 20110326
  2. GLIMICRON [Concomitant]
     Dosage: DAILY DOSE 80 MG
     Route: 048
  3. SORAFENIB (RAF KINASE INHIBITOR) [Suspect]
     Indication: HEPATIC NEOPLASM MALIGNANT
     Dosage: 400 MG, QD
     Route: 048
     Dates: start: 20110317, end: 20110414
  4. ARELIX [Concomitant]
     Dosage: DAILY DOSE 3 MG
     Route: 048
     Dates: end: 20110326
  5. URSO 250 [Concomitant]
     Dosage: DAILY DOSE 300 MG
     Route: 048
  6. PORTOLAC [Concomitant]
     Dosage: DAILY DOSE 12 G
     Route: 048
  7. HIRUDOID [Concomitant]
     Indication: PROPHYLAXIS
     Dosage: UNK
     Route: 061
     Dates: start: 20110317
  8. LIVACT [Concomitant]
     Dosage: DAILY DOSE 3 DF
     Route: 048
  9. SORAFENIB (RAF KINASE INHIBITOR) [Suspect]
     Dosage: 800 MG, QD
     Route: 048
     Dates: start: 20110524, end: 20111025
  10. SORAFENIB (RAF KINASE INHIBITOR) [Suspect]
     Dosage: 600 MG, QD
     Route: 048
     Dates: start: 20110415, end: 20110523
  11. ALDACTONE [Concomitant]
     Dosage: DAILY DOSE 50 MG
     Route: 048

REACTIONS (5)
  - HEPATIC FAILURE [None]
  - ASCITES [None]
  - PIGMENTATION DISORDER [None]
  - DIARRHOEA [None]
  - HEPATIC NEOPLASM MALIGNANT [None]
